FAERS Safety Report 8999043 (Version 3)
Quarter: 2013Q2

REPORT INFORMATION
  Report Type: Spontaneous
  Country: US (occurrence: US)
  Receive Date: 20130103
  Receipt Date: 20130621
  Transmission Date: 20140414
  Serious: Yes (Other)
  Sender: FDA-Public Use
  Company Number: US-BRISTOL-MYERS SQUIBB COMPANY-17245101

PATIENT
  Age: 47 Year
  Sex: Female
  Weight: 82 kg

DRUGS (4)
  1. ORENCIA [Suspect]
     Indication: RHEUMATOID ARTHRITIS
     Dosage: LAST INFUSION ON 21FEB13
     Route: 042
     Dates: start: 201212
  2. TRIAMCINOLONE ACE INJ [Suspect]
  3. LEFLUNOMIDE [Suspect]
  4. BETADINE [Suspect]

REACTIONS (12)
  - Gallbladder disorder [Recovering/Resolving]
  - Anxiety [Unknown]
  - Urinary tract infection [Unknown]
  - Fungal infection [Unknown]
  - Rheumatoid arthritis [Unknown]
  - Red blood cell sedimentation rate decreased [Unknown]
  - Rash [Unknown]
  - Headache [Unknown]
  - Nausea [Unknown]
  - Fatigue [Unknown]
  - Weight increased [Unknown]
  - Local swelling [Unknown]
